FAERS Safety Report 25595303 (Version 1)
Quarter: 2025Q3

REPORT INFORMATION
  Report Type: Spontaneous
  Country: EU (occurrence: EU)
  Receive Date: 20250723
  Receipt Date: 20250723
  Transmission Date: 20251020
  Serious: Yes (Death, Other)
  Sender: SANDOZ
  Company Number: EU-BRISTOL-MYERS SQUIBB COMPANY-2025-094683

PATIENT
  Age: 37 Year
  Sex: Female

DRUGS (20)
  1. BEVACIZUMAB [Suspect]
     Active Substance: BEVACIZUMAB
     Indication: Medulloblastoma
     Dosage: 10 MG/KG, Q2W
     Route: 042
  2. BEVACIZUMAB [Suspect]
     Active Substance: BEVACIZUMAB
     Indication: Medulloblastoma recurrent
  3. BEVACIZUMAB [Suspect]
     Active Substance: BEVACIZUMAB
     Indication: Off label use
  4. CELECOXIB [Suspect]
     Active Substance: CELECOXIB
     Indication: Medulloblastoma
     Dosage: 400 MILLIGRAM X 2, BID
     Route: 048
  5. CELECOXIB [Suspect]
     Active Substance: CELECOXIB
     Indication: Medulloblastoma recurrent
  6. CYCLOPHOSPHAMIDE [Suspect]
     Active Substance: CYCLOPHOSPHAMIDE
     Indication: Medulloblastoma
     Route: 048
  7. CYCLOPHOSPHAMIDE [Suspect]
     Active Substance: CYCLOPHOSPHAMIDE
     Indication: Medulloblastoma recurrent
  8. CYTARABINE [Suspect]
     Active Substance: CYTARABINE
     Indication: Medulloblastoma
     Route: 065
  9. ETOPOSIDE [Suspect]
     Active Substance: ETOPOSIDE
     Dosage: 1 MILLIGRAM, QD (FOR 3 DAYS OF EACH 28-DAY CYCLE)
  10. ETOPOSIDE [Suspect]
     Active Substance: ETOPOSIDE
     Route: 065
  11. ETOPOSIDE [Suspect]
     Active Substance: ETOPOSIDE
     Route: 065
  12. ETOPOSIDE [Suspect]
     Active Substance: ETOPOSIDE
     Indication: Medulloblastoma
     Route: 065
  13. FENOFIBRATE [Suspect]
     Active Substance: FENOFIBRATE
     Indication: Medulloblastoma
     Dosage: 90 MG/M2, QD
     Route: 048
  14. FENOFIBRATE [Suspect]
     Active Substance: FENOFIBRATE
     Indication: Medulloblastoma recurrent
  15. THALIDOMIDE [Suspect]
     Active Substance: THALIDOMIDE
     Indication: Medulloblastoma recurrent
     Dosage: 3 MG/KG, QD
     Route: 048
  16. CARBOPLATIN [Concomitant]
     Active Substance: CARBOPLATIN
     Indication: Medulloblastoma
     Route: 065
  17. CARBOPLATIN [Concomitant]
     Active Substance: CARBOPLATIN
     Route: 065
  18. TEMOZOLOMIDE [Concomitant]
     Active Substance: TEMOZOLOMIDE
     Indication: Medulloblastoma
     Route: 065
  19. TOPOTECAN [Concomitant]
     Active Substance: TOPOTECAN HYDROCHLORIDE
     Indication: Medulloblastoma
     Route: 065
  20. SULFAMETHOXAZOLE\TRIMETHOPRIM [Concomitant]
     Active Substance: SULFAMETHOXAZOLE\TRIMETHOPRIM
     Indication: Prophylaxis
     Route: 065

REACTIONS (8)
  - Medulloblastoma recurrent [Fatal]
  - Neutropenia [Unknown]
  - Neurotoxicity [Unknown]
  - Arachnoiditis [Unknown]
  - Oesophageal candidiasis [Unknown]
  - Lymphopenia [Unknown]
  - Asthenia [Unknown]
  - Off label use [Unknown]
